FAERS Safety Report 13869409 (Version 1)
Quarter: 2017Q3

REPORT INFORMATION
  Report Type: Spontaneous
  Country: US (occurrence: US)
  Receive Date: 20170815
  Receipt Date: 20170815
  Transmission Date: 20171127
  Serious: Yes (Death, Hospitalization, Other)
  Sender: FDA-Public Use
  Company Number: US-PFIZER INC-2017350535

PATIENT
  Age: 72 Year
  Sex: Female
  Weight: 59 kg

DRUGS (6)
  1. HEPARIN [Concomitant]
     Active Substance: HEPARIN SODIUM
     Dosage: LOW DOSE INJECTION IN THE ABDOMINAL AREA
     Dates: start: 20170707, end: 20170717
  2. JANUVIA [Concomitant]
     Active Substance: SITAGLIPTIN PHOSPHATE
     Indication: DIABETES MELLITUS
     Dosage: UNK, 1X/DAY
     Route: 048
  3. IBRANCE [Suspect]
     Active Substance: PALBOCICLIB
     Indication: BREAST CANCER METASTATIC
     Dosage: 125 MG, 1X/DAY
     Route: 048
     Dates: start: 20170623, end: 20170706
  4. XGEVA [Concomitant]
     Active Substance: DENOSUMAB
     Dosage: UNK
     Dates: start: 20170623, end: 20170623
  5. FASLODEX [Suspect]
     Active Substance: FULVESTRANT
     Indication: HORMONE SUPPRESSION THERAPY
     Dosage: DOSE UNKNOWN BY INJECTION
     Dates: start: 20170623, end: 20170623
  6. POTASSIUM [Concomitant]
     Active Substance: POTASSIUM
     Indication: BLOOD POTASSIUM DECREASED
     Dosage: UNK

REACTIONS (16)
  - Decreased appetite [Unknown]
  - Back pain [Unknown]
  - Disorientation [Unknown]
  - Diarrhoea [Unknown]
  - Dyspnoea [Fatal]
  - Immune system disorder [Unknown]
  - Atrial fibrillation [Fatal]
  - Mental disorder [Unknown]
  - Organ failure [Unknown]
  - Staphylococcal infection [Unknown]
  - Fatigue [Unknown]
  - Pulmonary embolism [Fatal]
  - Urinary tract infection [Unknown]
  - Delusion [Unknown]
  - Clostridium difficile infection [Unknown]
  - Headache [Unknown]

NARRATIVE: CASE EVENT DATE: 201706
